FAERS Safety Report 26011592 (Version 1)
Quarter: 2025Q4

REPORT INFORMATION
  Report Type: Spontaneous
  Country: US (occurrence: None)
  Receive Date: 20251106
  Receipt Date: 20251106
  Transmission Date: 20260117
  Serious: Yes (Other)
  Sender: FDA-CTU
  Company Number: None

PATIENT
  Age: 39 Year
  Sex: Female
  Weight: 50.4 kg

DRUGS (3)
  1. LEXAPRO [Suspect]
     Active Substance: ESCITALOPRAM OXALATE
  2. EFFEXOR [Suspect]
     Active Substance: VENLAFAXINE HYDROCHLORIDE
  3. MAGNESIUM GLYCINATE [Concomitant]
     Active Substance: MAGNESIUM GLYCINATE

REACTIONS (25)
  - Anxiety [None]
  - Paraesthesia [None]
  - Feeling jittery [None]
  - Diarrhoea [None]
  - Headache [None]
  - Muscle fatigue [None]
  - Fatigue [None]
  - Therapy change [None]
  - Withdrawal syndrome [None]
  - Electric shock sensation [None]
  - Dizziness [None]
  - Photophobia [None]
  - Sympathomimetic effect [None]
  - Hot flush [None]
  - Oral discomfort [None]
  - Oral discomfort [None]
  - Ocular hyperaemia [None]
  - Skin exfoliation [None]
  - Vision blurred [None]
  - Depression [None]
  - Panic attack [None]
  - Pain in jaw [None]
  - Neuralgia [None]
  - Abdominal pain upper [None]
  - Rash [None]

NARRATIVE: CASE EVENT DATE: 20230914
